FAERS Safety Report 15239882 (Version 1)
Quarter: 2018Q3

REPORT INFORMATION
  Report Type: Report from Study
  Country: None (occurrence: US)
  Receive Date: 20180803
  Receipt Date: 20180803
  Transmission Date: 20181010
  Serious: Yes (Other)
  Sender: FDA-Public Use
  Company Number: US-ABBVIE-18K-163-2434280-00

PATIENT
  Age: 59 Year
  Sex: Female

DRUGS (1)
  1. MAVYRET [Suspect]
     Active Substance: GLECAPREVIR\PIBRENTASVIR
     Indication: HEPATITIS C
     Route: 048
     Dates: start: 20180507

REACTIONS (3)
  - Hepatic neoplasm [Not Recovered/Not Resolved]
  - Protein total increased [Not Recovered/Not Resolved]
  - Benign spleen tumour [Not Recovered/Not Resolved]

NARRATIVE: CASE EVENT DATE: 20180720
